FAERS Safety Report 11473150 (Version 1)
Quarter: 2015Q3

REPORT INFORMATION
  Report Type: Spontaneous
  Country: US (occurrence: None)
  Receive Date: 20150828
  Receipt Date: 20150828
  Transmission Date: 20151125
  Serious: Yes (Other)
  Sender: FDA-Public Use
  Company Number: AMAG201400304

PATIENT
  Age: 68 Year
  Sex: Male
  Weight: 76.2 kg

DRUGS (2)
  1. LASIX [Concomitant]
     Active Substance: FUROSEMIDE
  2. FERAHEME [Suspect]
     Active Substance: FERUMOXYTOL NON-STOICHIOMETRIC MAGNETITE
     Indication: IRON DEFICIENCY ANAEMIA
     Dosage: 1 DOSE
     Route: 042
     Dates: start: 20140804, end: 20140804

REACTIONS (3)
  - Dizziness [None]
  - Unresponsive to stimuli [None]
  - Loss of consciousness [None]

NARRATIVE: CASE EVENT DATE: 20140804
